FAERS Safety Report 15700407 (Version 1)
Quarter: 2018Q4

REPORT INFORMATION
  Report Type: Spontaneous
  Country: HU (occurrence: HU)
  Receive Date: 20181207
  Receipt Date: 20181207
  Transmission Date: 20190205
  Serious: Yes (Death, Other)
  Sender: FDA-Public Use
  Company Number: PHHY2018HU176497

PATIENT
  Age: 72 Year
  Sex: Female

DRUGS (5)
  1. TAFINLAR [Suspect]
     Active Substance: DABRAFENIB MESYLATE
     Indication: MALIGNANT MELANOMA
     Dosage: 150 MG, BID
     Route: 065
     Dates: start: 20170822, end: 20180109
  2. LETROX [Concomitant]
     Active Substance: LEVOTHYROXINE SODIUM
     Indication: HYPOTHYROIDISM
     Dosage: UNK
     Route: 065
     Dates: start: 2009
  3. MEKINIST [Suspect]
     Active Substance: TRAMETINIB DIMETHYL SULFOXIDE
     Indication: MALIGNANT MELANOMA
     Dosage: 2 MG, UNK
     Route: 065
     Dates: start: 20170822, end: 20180109
  4. TEGRETOL [Suspect]
     Active Substance: CARBAMAZEPINE
     Indication: MALIGNANT MELANOMA
     Dosage: UNK
     Route: 065
  5. GLYCERINE [Concomitant]
     Active Substance: GLYCERIN
     Indication: METASTASES TO CENTRAL NERVOUS SYSTEM
     Dosage: UNK
     Route: 065

REACTIONS (8)
  - Blood chloride decreased [Unknown]
  - Pulmonary oedema [Fatal]
  - Malignant melanoma [Unknown]
  - Malignant neoplasm progression [Unknown]
  - Pain [Unknown]
  - Blood sodium decreased [Unknown]
  - Hypertension [Unknown]
  - Asthenia [Unknown]
